FAERS Safety Report 12582087 (Version 2)
Quarter: 2016Q3

REPORT INFORMATION
  Report Type: Spontaneous
  Country: CH (occurrence: CH)
  Receive Date: 20160722
  Receipt Date: 20160726
  Transmission Date: 20161109
  Serious: Yes (Life-Threatening, Hospitalization, Other)
  Sender: FDA-Public Use
  Company Number: CH-AMGEN-CHESP2016094624

PATIENT
  Age: 72 Year
  Sex: Female
  Weight: 55 kg

DRUGS (18)
  1. KYPROLIS [Suspect]
     Active Substance: CARFILZOMIB
     Indication: PLASMA CELL MYELOMA
     Dosage: 33.6 MG, (19.98 MG/M2)
     Route: 041
     Dates: start: 20160419
  2. CALCIMAGON D3 [Concomitant]
     Active Substance: CALCIUM\CHOLECALCIFEROL
     Dosage: 1 DF, QD
     Route: 048
  3. ZYLORIC [Concomitant]
     Active Substance: ALLOPURINOL
     Dosage: 100 MG, QD
     Route: 048
  4. KYPROLIS [Suspect]
     Active Substance: CARFILZOMIB
     Dosage: 45.4 MG, (27 MG/M2)
     Route: 041
     Dates: start: 20160504
  5. KYPROLIS [Suspect]
     Active Substance: CARFILZOMIB
     Dosage: 45.4 MG, UNK (27 MG/M2)
     Route: 041
     Dates: start: 20160518
  6. BACTRIM [Concomitant]
     Active Substance: SULFAMETHOXAZOLE\TRIMETHOPRIM
     Dosage: 1 DF, 3 TIMES/WK
     Route: 048
  7. KYPROLIS [Suspect]
     Active Substance: CARFILZOMIB
     Dosage: 45.4 MG, UNK (27 MG/M2)
     Route: 041
     Dates: start: 20160426
  8. KYPROLIS [Suspect]
     Active Substance: CARFILZOMIB
     Dosage: 45.4 MG, (27 MG/M2)
     Route: 041
     Dates: start: 20160503
  9. KYPROLIS [Suspect]
     Active Substance: CARFILZOMIB
     Dosage: 45.4 MG, UNK (27 MG/M2)
     Route: 041
     Dates: start: 20160525, end: 20160531
  10. DEXAMETHASON [Concomitant]
     Active Substance: DEXAMETHASONE
     Dosage: 20 MG, CYCLICAL
     Route: 048
     Dates: start: 20160419, end: 20160531
  11. ASPIRIN CARDIO [Concomitant]
     Active Substance: ASPIRIN
     Dosage: 100 MG, QD
     Route: 048
  12. KYPROLIS [Suspect]
     Active Substance: CARFILZOMIB
     Dosage: 45.4 MG, UNK (27MG/M2)
     Route: 041
     Dates: start: 20160427
  13. KYPROLIS [Suspect]
     Active Substance: CARFILZOMIB
     Dosage: 45.4 MG, UNK (27 MG/M2)
     Route: 041
     Dates: start: 20160517
  14. REVLIMID [Concomitant]
     Active Substance: LENALIDOMIDE
     Dosage: 15 MG, CYCLICAL
     Route: 048
     Dates: start: 20160419, end: 20160531
  15. KYPROLIS [Suspect]
     Active Substance: CARFILZOMIB
     Dosage: 33.6 MG, UNK (19.98 MG/M2)
     Route: 041
     Dates: start: 20160420
  16. KYPROLIS [Suspect]
     Active Substance: CARFILZOMIB
     Dosage: 45.4 MG, UNK (27 MG/M2)
     Route: 041
     Dates: start: 20160524
  17. VALTREX [Concomitant]
     Active Substance: VALACYCLOVIR HYDROCHLORIDE
     Dosage: 500 MG, BID
     Route: 048
  18. REMERON [Concomitant]
     Active Substance: MIRTAZAPINE
     Dosage: 15 MG, QD
     Route: 048

REACTIONS (2)
  - Cardiac failure [Unknown]
  - Stress cardiomyopathy [Unknown]

NARRATIVE: CASE EVENT DATE: 20160531
